FAERS Safety Report 18618615 (Version 1)
Quarter: 2020Q4

REPORT INFORMATION
  Report Type: Spontaneous
  Country: CA (occurrence: CA)
  Receive Date: 20201215
  Receipt Date: 20201215
  Transmission Date: 20210114
  Serious: Yes (Other)
  Sender: FDA-Public Use
  Company Number: CA-BAYER-2020-272557

PATIENT
  Sex: Male

DRUGS (9)
  1. SULFASALAZINE. [Suspect]
     Active Substance: SULFASALAZINE
     Dosage: UNK
  2. FOLIC ACID. [Suspect]
     Active Substance: FOLIC ACID
     Dosage: UNK
  3. LEFLUNOMIDE. [Suspect]
     Active Substance: LEFLUNOMIDE
     Dosage: UNK
  4. XELJANZ [Suspect]
     Active Substance: TOFACITINIB CITRATE
     Dosage: UNK
  5. STELARA [Suspect]
     Active Substance: USTEKINUMAB
     Dosage: UNK
  6. CIPRO [Suspect]
     Active Substance: CIPROFLOXACIN HYDROCHLORIDE
     Indication: PRODUCT USED FOR UNKNOWN INDICATION
     Dosage: UNK
  7. COSENTYX [Suspect]
     Active Substance: SECUKINUMAB
     Indication: PSORIASIS
  8. METHOTREXATE. [Suspect]
     Active Substance: METHOTREXATE
     Dosage: UNK
  9. COSENTYX [Suspect]
     Active Substance: SECUKINUMAB
     Indication: PSORIATIC ARTHROPATHY
     Dosage: UNK

REACTIONS (14)
  - Dyspepsia [None]
  - Pruritus [None]
  - Abdominal discomfort [None]
  - Pain in extremity [None]
  - Treatment failure [None]
  - Drug hypersensitivity [None]
  - Drug ineffective [None]
  - Drug intolerance [None]
  - Rheumatoid arthritis [None]
  - Hand deformity [None]
  - Psoriatic arthropathy [None]
  - Joint swelling [None]
  - Nausea [None]
  - Peripheral swelling [None]
